FAERS Safety Report 12696205 (Version 3)
Quarter: 2017Q1

REPORT INFORMATION
  Report Type: Spontaneous
  Country: DE (occurrence: DE)
  Receive Date: 20160829
  Receipt Date: 20170201
  Transmission Date: 20170428
  Serious: Yes (Other)
  Sender: FDA-Public Use
  Company Number: DE-SHIRE-DE201610837

PATIENT
  Age: 10 Year
  Sex: Male
  Weight: 28 kg

DRUGS (4)
  1. INTUNIV [Suspect]
     Active Substance: GUANFACINE HYDROCHLORIDE
     Indication: FOETAL ALCOHOL SYNDROME
     Dosage: 1 MG, UNKNOWN
     Route: 048
     Dates: start: 20160602, end: 201606
  2. INTUNIV [Suspect]
     Active Substance: GUANFACINE HYDROCHLORIDE
     Dosage: 2 MG, UNKNOWN
     Route: 048
     Dates: start: 20160810, end: 20161012
  3. INTUNIV [Suspect]
     Active Substance: GUANFACINE HYDROCHLORIDE
     Dosage: 2 MG, UNKNOWN
     Route: 048
     Dates: start: 20160616, end: 201607
  4. INTUNIV [Suspect]
     Active Substance: GUANFACINE HYDROCHLORIDE
     Indication: ATTENTION DEFICIT/HYPERACTIVITY DISORDER
     Dosage: 3 MG, UNKNOWN
     Route: 048
     Dates: start: 20160708, end: 201608

REACTIONS (10)
  - Angina pectoris [Recovered/Resolved]
  - Hyperaesthesia [Recovered/Resolved]
  - Nausea [Unknown]
  - Tearfulness [Unknown]
  - Sleep disorder [Unknown]
  - Hallucination [Unknown]
  - Abdominal pain [Unknown]
  - Arthralgia [Recovered/Resolved]
  - Drug effect increased [Recovered/Resolved]
  - Headache [Unknown]

NARRATIVE: CASE EVENT DATE: 2016
